FAERS Safety Report 22050941 (Version 6)
Quarter: 2023Q2

REPORT INFORMATION
  Report Type: Report from Study
  Country: US (occurrence: US)
  Receive Date: 20230301
  Receipt Date: 20230627
  Transmission Date: 20230722
  Serious: No
  Sender: FDA-Public Use
  Company Number: US-002147023-NVSC2023US047641

PATIENT
  Sex: Female

DRUGS (1)
  1. KISQALI [Suspect]
     Active Substance: RIBOCICLIB
     Indication: Product used for unknown indication
     Dosage: UNK
     Route: 048

REACTIONS (9)
  - Dysphagia [Unknown]
  - Full blood count abnormal [Unknown]
  - Granulocyte count decreased [Unknown]
  - Sensitive skin [Unknown]
  - Skin disorder [Unknown]
  - Onychomadesis [Unknown]
  - White blood cell count decreased [Unknown]
  - Alopecia [Unknown]
  - Red blood cell count decreased [Unknown]
